FAERS Safety Report 9015604 (Version 1)
Quarter: 2013Q1

REPORT INFORMATION
  Report Type: Spontaneous
  Country: US (occurrence: None)
  Receive Date: 20130102
  Receipt Date: 20130102
  Transmission Date: 20140127
  Serious: Yes (Hospitalization)
  Sender: FDA-Public Use
  Company Number: DSA_61500_2012

PATIENT
  Age: 62 Year
  Sex: Male

DRUGS (2)
  1. ATIVAN [Suspect]
     Indication: PRODUCT USED FOR UNKNOWN INDICATION
     Dosage: (DF)
     Dates: start: 20121029
  2. XANAX 0.25 [Suspect]
     Indication: PRODUCT USED FOR UNKNOWN INDICATION
     Dates: start: 20121029

REACTIONS (9)
  - Middle insomnia [None]
  - Panic attack [None]
  - Anxiety [None]
  - Chest pain [None]
  - Respiratory rate increased [None]
  - Feeling hot [None]
  - Somnolence [None]
  - Insomnia [None]
  - Anxiety [None]
